FAERS Safety Report 24275376 (Version 1)
Quarter: 2024Q3

REPORT INFORMATION
  Report Type: Spontaneous
  Country: PL (occurrence: PL)
  Receive Date: 20240903
  Receipt Date: 20240903
  Transmission Date: 20241017
  Serious: Yes (Hospitalization)
  Sender: ACCORD
  Company Number: None

PATIENT
  Age: 60 Year
  Sex: Female
  Weight: 56 kg

DRUGS (3)
  1. OXALIPLATIN [Suspect]
     Active Substance: OXALIPLATIN
     Indication: Gastric cancer
     Dosage: 0.1/20 ML
     Dates: start: 20200602, end: 20200602
  2. FLUOROURACIL [Suspect]
     Active Substance: FLUOROURACIL
     Indication: Gastric cancer
     Dosage: FLUOROURACIL 5000 MEDAC 5.0/1000 ML
     Dates: start: 20200606, end: 20200606
  3. LEVOLEUCOVORIN CALCIUM [Suspect]
     Active Substance: LEVOLEUCOVORIN CALCIUM
     Indication: Gastric cancer
     Dosage: STRENGTH: 200 MG/4 ML, 0,2/4 ML
     Dates: start: 20200606, end: 20200606

REACTIONS (1)
  - Yersinia sepsis [Recovered/Resolved]

NARRATIVE: CASE EVENT DATE: 20200606
